FAERS Safety Report 9284369 (Version 5)
Quarter: 2013Q4

REPORT INFORMATION
  Report Type: Spontaneous
  Country: US (occurrence: US)
  Receive Date: 20130510
  Receipt Date: 20131217
  Transmission Date: 20140711
  Serious: Yes (Hospitalization, Other)
  Sender: FDA-Public Use
  Company Number: US-MERCK-1305USA002386

PATIENT
  Sex: Female
  Weight: 84.35 kg

DRUGS (3)
  1. FOSAMAX [Suspect]
     Indication: OSTEOPOROSIS
     Dosage: 70 MG, QW
     Route: 048
  2. ALENDRONATE SODIUM [Suspect]
     Dosage: 70 MG, UNK
     Route: 048
  3. ACTONEL [Concomitant]
     Indication: OSTEOPOROSIS
     Dosage: UNK
     Route: 048
     Dates: start: 20100127

REACTIONS (50)
  - Intramedullary rod insertion [Unknown]
  - Surgery [Unknown]
  - Spinal fusion surgery [Unknown]
  - Rectal cancer [Unknown]
  - White blood cell count increased [Unknown]
  - Metastases to bone marrow [Unknown]
  - Femur fracture [Unknown]
  - Impaired healing [Unknown]
  - Hypercholesterolaemia [Unknown]
  - Compression fracture [Unknown]
  - Vertebroplasty [Unknown]
  - Exostosis [Unknown]
  - Bone contusion [Unknown]
  - Osteoarthritis [Unknown]
  - Device failure [Unknown]
  - Polyarthritis [Unknown]
  - Hypothyroidism [Unknown]
  - Appendicectomy [Unknown]
  - Tendon sheath incision [Unknown]
  - Cataract [Unknown]
  - Macular degeneration [Unknown]
  - Supraventricular tachycardia [Unknown]
  - Nephrolithiasis [Unknown]
  - Carotid artery stenosis [Unknown]
  - Neuropathy peripheral [Unknown]
  - Borderline glaucoma [Unknown]
  - Infection [Recovered/Resolved]
  - Transient ischaemic attack [Unknown]
  - Pulmonary valve incompetence [Unknown]
  - Osteoarthritis [Unknown]
  - Diabetes mellitus [Unknown]
  - Hepatitis C [Unknown]
  - Radiotherapy [Unknown]
  - Non-alcoholic steatohepatitis [Unknown]
  - Rectal haemorrhage [Unknown]
  - Intervertebral disc protrusion [Unknown]
  - Lumbar spinal stenosis [Unknown]
  - Exostosis [Unknown]
  - Contusion [Unknown]
  - Osteoarthritis [Unknown]
  - Fracture nonunion [Unknown]
  - Bursitis [Unknown]
  - Periorbital contusion [Unknown]
  - Cardiac murmur [Unknown]
  - Anaemia postoperative [Unknown]
  - Arthralgia [Unknown]
  - Drug ineffective [Unknown]
  - Diarrhoea [Unknown]
  - Arthralgia [Unknown]
  - Gastrooesophageal reflux disease [Unknown]
